FAERS Safety Report 14648769 (Version 2)
Quarter: 2018Q3

REPORT INFORMATION
  Report Type: Spontaneous
  Country: FI (occurrence: FI)
  Receive Date: 20180316
  Receipt Date: 20180710
  Transmission Date: 20181010
  Serious: Yes (Hospitalization, Other)
  Sender: FDA-Public Use
  Company Number: FI-PFIZER INC-2018104129

PATIENT
  Age: 79 Year
  Sex: Male
  Weight: 73 kg

DRUGS (12)
  1. RAMIPRIL. [Concomitant]
     Active Substance: RAMIPRIL
     Indication: HYPERTENSION
     Dosage: 2.5 MG, 1X/DAY
  2. CLINDAMYCIN PHOSPHATE. [Suspect]
     Active Substance: CLINDAMYCIN PHOSPHATE
     Indication: POSTOPERATIVE WOUND INFECTION
     Dosage: UNK
  3. PRIMASPAN [Concomitant]
     Active Substance: ASPIRIN
     Indication: PERIPHERAL ARTERIAL OCCLUSIVE DISEASE
     Dosage: 100 MG, 1X/DAY
  4. LIPCUT [Concomitant]
     Active Substance: SIMVASTATIN
     Indication: HYPERCHOLESTEROLAEMIA
     Dosage: 10 MG, 1X/DAY
  5. SIMVASTATIN. [Concomitant]
     Active Substance: SIMVASTATIN
     Indication: HYPERCHOLESTEROLAEMIA
     Dosage: 10 MG, 1X/DAY
  6. LOSARTAN AND HYDROCHLOROTHIAZIDE [Concomitant]
     Active Substance: HYDROCHLOROTHIAZIDE\LOSARTAN POTASSIUM
     Indication: HYPERTENSION
     Dosage: 1 DF, 1X/DAY (UNIT DOSE AND DAILY DOSE 12.5/50 MG)
  7. OFEV [Suspect]
     Active Substance: NINTEDANIB
     Indication: IDIOPATHIC PULMONARY FIBROSIS
     Dosage: 300 MG, 1X/DAY
     Dates: start: 20170222, end: 20170630
  8. OFEV [Suspect]
     Active Substance: NINTEDANIB
     Dosage: 150 MG, 1X/DAY
     Dates: start: 201707, end: 201708
  9. CARDACE [Concomitant]
     Active Substance: RAMIPRIL
     Indication: HYPERTENSION
     Dosage: 2.5 MG, 1X/DAY
  10. OFEV [Suspect]
     Active Substance: NINTEDANIB
     Dosage: 300 MG, 1X/DAY
     Dates: start: 201708, end: 20170824
  11. CEFUROXIME. [Suspect]
     Active Substance: CEFUROXIME
     Indication: POSTOPERATIVE WOUND INFECTION
     Dosage: UNK
  12. DINIT [Concomitant]
     Active Substance: ISOSORBIDE DINITRATE
     Dosage: UNK UNK, AS NEEDED

REACTIONS (3)
  - Procedural complication [Recovered/Resolved]
  - Myocardial infarction [Recovered/Resolved]
  - Diarrhoea [Recovered/Resolved]
